FAERS Safety Report 8304718-X (Version None)
Quarter: 2012Q2

REPORT INFORMATION
  Report Type: 
  Country: None (occurrence: None)
  Receive Date: 20120423
  Receipt Date: 20120412
  Transmission Date: 20120825
  Serious: Yes (Other)
  Sender: FDA-Public Use
  Company Number: SE-ASTRAZENECA-2012SE24629

PATIENT
  Age: 69 Year
  Sex: Male

DRUGS (8)
  1. METOPROLOL TARTRATE [Concomitant]
  2. ATACAND [Suspect]
     Route: 048
     Dates: start: 20110501
  3. ATACAND [Suspect]
     Dosage: GRADUALLY INCREASED TO 16 MG
     Route: 048
     Dates: start: 20000101
  4. LIPITOR [Concomitant]
  5. ATACAND [Suspect]
     Dosage: GRADUALLY INCREASED TO 32 MG
     Route: 048
     Dates: start: 20101101
  6. ATACAND [Suspect]
     Route: 048
     Dates: start: 20111101
  7. LIPITOR [Concomitant]
  8. WARFARIN SODIUM [Concomitant]

REACTIONS (3)
  - THROMBOSIS [None]
  - COLD SWEAT [None]
  - FATIGUE [None]
